FAERS Safety Report 7571739-4 (Version None)
Quarter: 2011Q2

REPORT INFORMATION
  Report Type: 
  Country: None (occurrence: None)
  Receive Date: 20110620
  Receipt Date: 20110603
  Transmission Date: 20111010
  Serious: Yes (Other)
  Sender: FDA-Public Use
  Company Number: 2011MA006750

PATIENT
  Age: 70 Year
  Sex: Female

DRUGS (1)
  1. SULFATRIM PEDIATRIC [Suspect]
     Indication: PROPHYLAXIS
     Dosage: 480 MG;QW

REACTIONS (1)
  - INTERSTITIAL LUNG DISEASE [None]
